FAERS Safety Report 5275191-3 (Version None)
Quarter: 2007Q1

REPORT INFORMATION
  Report Type: 
  Country: None (occurrence: None)
  Receive Date: 20061214
  Receipt Date: 20060612
  Transmission Date: 20070707
  Serious: Yes (Other)
  Sender: FDA-Public Use
  Company Number: 2006074521

PATIENT
  Sex: Female
  Weight: 65.7716 kg

DRUGS (5)
  1. BEXTRA [Suspect]
     Indication: BACK PAIN
     Dosage: COUPLE OF YEARS AGO
  2. BENICAR (OLMESARTAN MEDIXOMIL) [Concomitant]
  3. NORVASC [Concomitant]
  4. SYNTHROID (LEVOTHYORXINE SODIUM) [Concomitant]
  5. NEXIUM [Concomitant]

REACTIONS (2)
  - CARDIAC DISORDER [None]
  - PALPITATIONS [None]
